FAERS Safety Report 4704775-3 (Version None)
Quarter: 2005Q2

REPORT INFORMATION
  Report Type: 
  Country: None (occurrence: None)
  Receive Date: 20050630
  Receipt Date: 20050620
  Transmission Date: 20051028
  Serious: Yes (Death)
  Sender: FDA-Public Use
  Company Number: 2005-05-0672

PATIENT
  Age: 77 Year
  Sex: Male

DRUGS (22)
  1. PROVENTIL-HFA [Suspect]
     Dosage: 100 MCG BID ORAL AER INH
     Route: 055
  2. BECLOMETHASONE DIPROPIONATE [Suspect]
     Dosage: 100 MCG BID ORAL AER INH
     Route: 055
  3. COMBIVENT [Suspect]
     Dosage: 4 PUFFS QID ORAL AER INH
     Route: 055
  4. TIOTROPIUM BROMIDE [Suspect]
     Dosage: 18 MCG ORAL AER INH
     Route: 055
  5. ASPIRIN [Suspect]
     Dosage: 75 MG ORAL
     Route: 048
  6. ATORVASTATIN CALCIUM [Suspect]
     Dosage: 10 MG ORAL
     Route: 048
  7. FRUMIL [Suspect]
  8. DEXAMETHASONE [Suspect]
     Dosage: 2 MG
  9. DILTIAZEM [Suspect]
     Dosage: 60 MG BID ORAL
     Route: 048
  10. DOSULEPIN [Suspect]
     Dosage: 75 MG QD
  11. FUROSEMIDE [Suspect]
     Dosage: 80 MG ORAL
     Route: 048
  12. GAVISCON [Suspect]
     Dosage: 10 ML QID
  13. LACTULOSE [Suspect]
  14. LANSOPRAZOLE [Suspect]
     Dosage: 30 MG QD
  15. METOCLOPRAMIDE [Suspect]
     Dosage: 10 MG TID
  16. NITROLINGUAL [Suspect]
     Dosage: 400 MG
  17. NOZINAN [Suspect]
     Dosage: 25 MG QID
  18. OXYCODONE HCL [Suspect]
     Dosage: 20 MG BID
  19. OXYGEN [Suspect]
     Dosage: INHALATION
     Route: 055
  20. SPIRONOLACTONE [Suspect]
     Dosage: 50 MG ORAL
     Route: 048
  21. SYMBICORT (BUDESONIDE/FORMOTEROL) ORAL AEROSOL [Suspect]
     Dosage: 1-2 PUFFS BID ORAL AER I
  22. TEMAZEPAM [Suspect]
     Dosage: 1-2 PM QD ORAL
     Route: 048

REACTIONS (1)
  - MESOTHELIOMA [None]
